FAERS Safety Report 24953447 (Version 1)
Quarter: 2025Q1

REPORT INFORMATION
  Report Type: Spontaneous
  Country: CA (occurrence: CA)
  Receive Date: 20250211
  Receipt Date: 20250211
  Transmission Date: 20250408
  Serious: Yes (Other)
  Sender: CELLTRION
  Company Number: CA-CELLTRION INC.-2025CA003457

PATIENT

DRUGS (5)
  1. RITUXIMAB [Suspect]
     Active Substance: RITUXIMAB
     Indication: Immune thrombocytopenia
     Dosage: 375 MG/M2, 1 EVERY 4 WEEKS
     Route: 042
  2. RITUXIMAB [Suspect]
     Active Substance: RITUXIMAB
     Dosage: 375 MILLIGRAM, 1 EVERY 4 WEEKS
     Route: 042
  3. RITUXIMAB [Suspect]
     Active Substance: RITUXIMAB
     Route: 065
  4. DEXAMETHASONE [Suspect]
     Active Substance: DEXAMETHASONE
     Indication: Immune thrombocytopenia
     Route: 065
  5. METHYLPREDNISOLONE [Suspect]
     Active Substance: METHYLPREDNISOLONE
     Indication: Product used for unknown indication
     Route: 065

REACTIONS (3)
  - Immune thrombocytopenia [Unknown]
  - Off label use [Unknown]
  - Intentional product use issue [Unknown]
